FAERS Safety Report 25230353 (Version 1)
Quarter: 2025Q2

REPORT INFORMATION
  Report Type: Spontaneous
  Country: US (occurrence: US)
  Receive Date: 20250423
  Receipt Date: 20250423
  Transmission Date: 20250717
  Serious: Yes (Death, Hospitalization)
  Sender: MYLAN
  Company Number: US-MYLANLABS-2025M1034421

PATIENT
  Age: 88 Year
  Sex: Male

DRUGS (8)
  1. VANCOMYCIN [Suspect]
     Active Substance: VANCOMYCIN
     Indication: Clostridium difficile infection
     Dosage: 125 MILLIGRAM, QID
  2. VANCOMYCIN [Suspect]
     Active Substance: VANCOMYCIN
     Indication: Clostridium difficile infection
  3. VANCOMYCIN [Suspect]
     Active Substance: VANCOMYCIN
     Indication: Megacolon
  4. METRONIDAZOLE [Suspect]
     Active Substance: METRONIDAZOLE
     Indication: Clostridium difficile infection
  5. METRONIDAZOLE [Suspect]
     Active Substance: METRONIDAZOLE
     Indication: Megacolon
  6. TIGECYCLINE [Suspect]
     Active Substance: TIGECYCLINE
     Indication: Clostridium difficile infection
  7. TIGECYCLINE [Suspect]
     Active Substance: TIGECYCLINE
     Indication: Megacolon
  8. MEROPENEM [Suspect]
     Active Substance: MEROPENEM
     Indication: Pseudomonas infection

REACTIONS (1)
  - Drug ineffective [Fatal]
